FAERS Safety Report 12242712 (Version 1)
Quarter: 2016Q2

REPORT INFORMATION
  Report Type: Spontaneous
  Country: IN (occurrence: IN)
  Receive Date: 20160406
  Receipt Date: 20160406
  Transmission Date: 20160815
  Serious: Yes (Other)
  Sender: FDA-Public Use
  Company Number: IN-PFIZER INC-2016189984

PATIENT

DRUGS (1)
  1. DOLONEX (PIROXICAM) [Suspect]
     Active Substance: PIROXICAM

REACTIONS (1)
  - Paralysis [Unknown]
